FAERS Safety Report 14154798 (Version 1)
Quarter: 2017Q4

REPORT INFORMATION
  Report Type: Spontaneous
  Country: US (occurrence: US)
  Receive Date: 20171102
  Receipt Date: 20171102
  Transmission Date: 20180321
  Serious: Yes (Other)
  Sender: FDA-Public Use
  Company Number: None

PATIENT
  Age: 55 Year
  Sex: Male
  Weight: 91.8 kg

DRUGS (1)
  1. FOSAMPRENAVIR CALCIUM. [Suspect]
     Active Substance: FOSAMPRENAVIR CALCIUM
     Indication: HIV INFECTION
     Route: 048
     Dates: start: 20171004, end: 20171011

REACTIONS (4)
  - Disease recurrence [None]
  - Treatment noncompliance [None]
  - Nausea [None]
  - Abdominal pain [None]

NARRATIVE: CASE EVENT DATE: 20171004
